FAERS Safety Report 6893718-2 (Version None)
Quarter: 2010Q3

REPORT INFORMATION
  Report Type: 
  Country: None (occurrence: None)
  Receive Date: 20100801
  Receipt Date: 20100721
  Transmission Date: 20110219
  Serious: Yes (Disabling)
  Sender: FDA-Public Use
  Company Number: PT-BRISTOL-MYERS SQUIBB COMPANY-15217995

PATIENT
  Age: 16 Year
  Sex: Female

DRUGS (1)
  1. GLUCOVANCE [Suspect]
     Dosage: 1 DF:3 DF
     Route: 048

REACTIONS (2)
  - COMA [None]
  - HYPOGLYCAEMIA [None]
